FAERS Safety Report 7063289-9 (Version None)
Quarter: 2010Q4

REPORT INFORMATION
  Report Type: 
  Country: None (occurrence: None)
  Receive Date: 20101026
  Receipt Date: 20100713
  Transmission Date: 20110411
  Serious: No
  Sender: FDA-Public Use
  Company Number: US-PFIZER INC-2010069423

PATIENT
  Sex: Female
  Weight: 46.712 kg

DRUGS (5)
  1. LIPITOR [Suspect]
     Indication: ARTERIAL DISORDER
     Dosage: 10 MG, 1X/DAY
     Route: 048
     Dates: start: 20100507
  2. LIPITOR [Suspect]
     Indication: LOW DENSITY LIPOPROTEIN INCREASED
  3. INDERAL [Concomitant]
     Indication: ATRIAL FIBRILLATION
     Dosage: 10 MG, 3X/DAY
  4. ACETYLSALICYLIC ACID [Concomitant]
     Dosage: 0.325 MG, 1X/DAY
  5. PROTONIX [Concomitant]
     Indication: GASTROOESOPHAGEAL REFLUX DISEASE
     Dosage: 40 MG, DAILY
     Dates: start: 20050101

REACTIONS (1)
  - URINARY TRACT INFECTION [None]
